FAERS Safety Report 10111978 (Version 2)
Quarter: 2014Q2

REPORT INFORMATION
  Report Type: Report from Study
  Country: GB (occurrence: GB)
  Receive Date: 20140425
  Receipt Date: 20140505
  Transmission Date: 20141212
  Serious: Yes (Hospitalization)
  Sender: FDA-Public Use
  Company Number: PHHO2014GB005821

PATIENT
  Sex: 0

DRUGS (10)
  1. BLINDED NO TREATMENT RECEIVED [Suspect]
     Indication: NELSON^S SYNDROME
     Dosage: CODE NOT BROKEN
  2. BLINDED PLACEBO [Suspect]
     Indication: NELSON^S SYNDROME
     Dosage: CODE NOT BROKEN
  3. BLINDED SOM230 [Suspect]
     Indication: NELSON^S SYNDROME
     Dosage: CODE NOT BROKEN
  4. SOM230 [Suspect]
     Indication: NELSON^S SYNDROME
     Dosage: 600 UG, BID
     Route: 058
     Dates: start: 20131211, end: 20140102
  5. SOM230 [Suspect]
     Indication: NELSON^S SYNDROME
     Dosage: 60 MG, EVERY 28 DAYS
     Route: 030
     Dates: start: 20140103, end: 20140414
  6. HYDROCORTISONE [Concomitant]
     Indication: CUSHING^S SYNDROME
     Dosage: 10MG/10MG/5MG
     Dates: start: 201110
  7. FLUDROCORTISONE [Concomitant]
     Indication: CUSHING^S SYNDROME
     Dosage: 50MCG/100MCG
     Dates: start: 201211
  8. LOSARTAN [Concomitant]
     Indication: HYPERTENSION
     Dosage: 25 MG, QD
     Route: 048
     Dates: start: 201309
  9. LEVOTHYROXINE [Concomitant]
     Indication: HYPOTHYROIDISM
     Dosage: 100 UG, QD
     Route: 048
  10. PRAVASTATIN [Concomitant]
     Indication: HYPERCHOLESTEROLAEMIA
     Dosage: 10 MG, QD
     Route: 048

REACTIONS (1)
  - Hyperglycaemia [Recovering/Resolving]
